FAERS Safety Report 5298557-4 (Version None)
Quarter: 2007Q2

REPORT INFORMATION
  Report Type: 
  Country: None (occurrence: None)
  Receive Date: 20070409
  Receipt Date: 20070328
  Transmission Date: 20071010
  Serious: Yes (Hospitalization)
  Sender: FDA-Public Use
  Company Number: 2007BI006871

PATIENT
  Age: 29 Year
  Sex: Female
  Weight: 58.9676 kg

DRUGS (1)
  1. AVONEX [Suspect]
     Indication: MULTIPLE SCLEROSIS
     Dosage: 30 UG;QW;IM
     Route: 030
     Dates: start: 20030901, end: 20051101

REACTIONS (8)
  - ALOPECIA [None]
  - BLOOD COUNT ABNORMAL [None]
  - DEHYDRATION [None]
  - HYPOGLYCAEMIA [None]
  - LOSS OF CONSCIOUSNESS [None]
  - UNEVALUABLE EVENT [None]
  - VOMITING [None]
  - WEIGHT DECREASED [None]
